FAERS Safety Report 14527575 (Version 1)
Quarter: 2018Q1

REPORT INFORMATION
  Report Type: Spontaneous
  Country: IT (occurrence: IT)
  Receive Date: 20180213
  Receipt Date: 20180213
  Transmission Date: 20180509
  Serious: Yes (Hospitalization)
  Sender: FDA-Public Use
  Company Number: IT-PFIZER INC-2017098834

PATIENT
  Age: 34 Year
  Sex: Female

DRUGS (5)
  1. XANAX [Suspect]
     Active Substance: ALPRAZOLAM
     Dosage: UNK
     Route: 048
  2. OKI [Suspect]
     Active Substance: KETOPROFEN LYSINE
     Route: 048
  3. METHADONE HYDROCHLORIDE. [Suspect]
     Active Substance: METHADONE HYDROCHLORIDE
     Route: 048
  4. STILNOX [Suspect]
     Active Substance: ZOLPIDEM TARTRATE
     Route: 048
  5. TEGRETOL [Suspect]
     Active Substance: CARBAMAZEPINE
     Route: 048

REACTIONS (5)
  - Abdominal pain [Unknown]
  - Nausea [Unknown]
  - Jaundice [Unknown]
  - Drug-induced liver injury [Unknown]
  - Vomiting [Unknown]

NARRATIVE: CASE EVENT DATE: 20161025
